FAERS Safety Report 19018444 (Version 1)
Quarter: 2021Q1

REPORT INFORMATION
  Report Type: Spontaneous
  Country: US (occurrence: US)
  Receive Date: 20210317
  Receipt Date: 20210317
  Transmission Date: 20210420
  Serious: No
  Sender: FDA-Public Use
  Company Number: None

PATIENT
  Age: 11 Year
  Sex: Male
  Weight: 32.85 kg

DRUGS (1)
  1. DEXMETHYLPHENIDATE ER 30 MG CAPSULE [Suspect]
     Active Substance: DEXMETHYLPHENIDATE HYDROCHLORIDE
     Indication: ATTENTION DEFICIT HYPERACTIVITY DISORDER
     Dosage: ?          QUANTITY:30 CAPSULE(S);?
     Route: 048
     Dates: start: 20210313

REACTIONS (5)
  - Suspected product quality issue [None]
  - Product lot number issue [None]
  - Drug ineffective [None]
  - Product expiration date issue [None]
  - Product substitution issue [None]

NARRATIVE: CASE EVENT DATE: 20210315
